FAERS Safety Report 7859090-6 (Version None)
Quarter: 2011Q4

REPORT INFORMATION
  Report Type: 
  Country: None (occurrence: None)
  Receive Date: 20111027
  Receipt Date: 20111021
  Transmission Date: 20120403
  Serious: Yes (Death, Other)
  Sender: FDA-Public Use
  Company Number: PHHY2011BR93756

PATIENT
  Sex: Male

DRUGS (3)
  1. METHYLDOPA [Concomitant]
  2. EXFORGE [Suspect]
     Dosage: 1 DF, (320/10 MG)
  3. CAPTOPRIL [Concomitant]
     Indication: HYPERTENSION

REACTIONS (2)
  - ROAD TRAFFIC ACCIDENT [None]
  - ABDOMINAL NEOPLASM [None]
